FAERS Safety Report 7450864-2 (Version None)
Quarter: 2011Q2

REPORT INFORMATION
  Report Type: 
  Country: None (occurrence: None)
  Receive Date: 20110422
  Receipt Date: 20110415
  Transmission Date: 20111010
  Serious: Yes (Hospitalization)
  Sender: FDA-Public Use
  Company Number: TCI2011A01739

PATIENT
  Age: 90 Year
  Sex: Female

DRUGS (2)
  1. ROZEREM [Suspect]
     Indication: CIRCADIAN RHYTHM SLEEP DISORDER
     Dosage: 8 MG (8MG, 1 IN 1 D), PER ORAL
     Route: 048
     Dates: start: 20110218, end: 20110218
  2. TAKEPRON (LANSOPRAZOLE) [Concomitant]

REACTIONS (2)
  - UNRESPONSIVE TO STIMULI [None]
  - CEREBRAL INFARCTION [None]
